FAERS Safety Report 16877311 (Version 5)
Quarter: 2019Q4

REPORT INFORMATION
  Report Type: Other
  Country: NL (occurrence: NL)
  Receive Date: 20191002
  Receipt Date: 20191213
  Transmission Date: 20200122
  Serious: Yes (Hospitalization)
  Sender: FDA-Public Use
  Company Number: NL-ASPEN-GLO2019NL010164

PATIENT
  Age: 60 Year
  Sex: Male
  Weight: 80.5 kg

DRUGS (20)
  1. DEXAMETHASONE. [Suspect]
     Active Substance: DEXAMETHASONE
     Dosage: UNK
     Route: 048
  2. DEXAMETHASONE. [Suspect]
     Active Substance: DEXAMETHASONE
     Indication: PLASMA CELL MYELOMA
     Dosage: 20 MG
     Route: 048
     Dates: start: 20190709, end: 20190709
  3. LENALIDOMIDE [Suspect]
     Active Substance: LENALIDOMIDE
     Dosage: 25 MG, CAPSULE. CYCLE 3 DAY 1
     Route: 048
  4. OXYCODONE [Concomitant]
     Active Substance: OXYCODONE
     Indication: PAIN
     Dosage: 10 MG, FREQUENCY = OTHER
     Route: 048
  5. PANTOPRAZOL AUROBINDO [Concomitant]
     Active Substance: PANTOPRAZOLE SODIUM
     Indication: INFECTION PROPHYLAXIS
     Dosage: 20 MG, QD
     Route: 048
  6. DEXAMETHASONE. [Suspect]
     Active Substance: DEXAMETHASONE
     Dosage: 40 MG
     Route: 048
  7. LENALIDOMIDE [Suspect]
     Active Substance: LENALIDOMIDE
     Dosage: UNK
     Route: 048
  8. DEXAMETHASONE. [Suspect]
     Active Substance: DEXAMETHASONE
     Dosage: 40 MG
     Route: 048
     Dates: start: 20190702, end: 20190713
  9. FENTANYL. [Concomitant]
     Active Substance: FENTANYL
     Indication: PAIN
     Dosage: 37 ?G, FREQUENCY = OTHER
     Route: 062
     Dates: start: 20190705, end: 20190814
  10. PREDNISONE. [Concomitant]
     Active Substance: PREDNISONE
     Indication: RASH
     Dosage: 15 MG, QD
     Route: 048
     Dates: start: 20190726, end: 20190821
  11. VELCADE [Suspect]
     Active Substance: BORTEZOMIB
     Dosage: MED KIT NO. BE19800200
     Route: 058
     Dates: start: 20190702, end: 20190712
  12. VELCADE [Suspect]
     Active Substance: BORTEZOMIB
     Dosage: CYCLE 2 DAY 1
     Route: 058
  13. VELCADE [Suspect]
     Active Substance: BORTEZOMIB
     Dosage: 2.6 MG. CYCLE 3 DAY 4
     Route: 058
  14. MOVICOLON [Concomitant]
     Active Substance: POLYETHYLENE GLYCOL 3350\POTASSIUM CHLORIDE\SODIUM BICARBONATE\SODIUM CHLORIDE
     Indication: CONSTIPATION
     Dosage: 1 SACHET, QD
     Route: 048
     Dates: start: 20190607
  15. VELCADE [Suspect]
     Active Substance: BORTEZOMIB
     Dosage: 2.2 MG
     Route: 058
     Dates: start: 20190715, end: 20190715
  16. LENALIDOMIDE [Suspect]
     Active Substance: LENALIDOMIDE
     Indication: PLASMA CELL MYELOMA
     Dosage: 25 MG, MED KIT NO. A2578AB
     Route: 048
     Dates: start: 20190702, end: 20190722
  17. LENALIDOMIDE [Suspect]
     Active Substance: LENALIDOMIDE
     Dosage: 25 MG, QD, CYCLE 2 DAY 1
     Route: 048
     Dates: start: 20190816, end: 20190905
  18. METOCLOPRAMIDE. [Concomitant]
     Active Substance: METOCLOPRAMIDE
     Indication: NAUSEA
     Dosage: 10 MG
     Route: 048
     Dates: start: 20190703
  19. VELCADE [Suspect]
     Active Substance: BORTEZOMIB
     Indication: PLASMA CELL MYELOMA
     Dosage: 2.6 MG, CYCLE 3 DAY 1
     Route: 058
     Dates: start: 20190702, end: 20190712
  20. FENTANYL. [Concomitant]
     Active Substance: FENTANYL
     Dosage: 25 MCG
     Route: 062
     Dates: start: 20190814, end: 20190912

REACTIONS (1)
  - Pyrexia [Recovered/Resolved]

NARRATIVE: CASE EVENT DATE: 20190805
